FAERS Safety Report 7173798-X (Version None)
Quarter: 2010Q4

REPORT INFORMATION
  Report Type: 
  Country: None (occurrence: None)
  Receive Date: 20101219
  Receipt Date: 20100310
  Transmission Date: 20110411
  Serious: No
  Sender: FDA-Public Use
  Company Number: US-AMGEN-KDL398823

PATIENT

DRUGS (26)
  1. ENBREL [Suspect]
     Indication: RHEUMATOID ARTHRITIS
     Dosage: 50 MG, QWK
     Route: 058
  2. ENBREL [Suspect]
     Indication: PSORIASIS
  3. ENBREL [Suspect]
     Indication: SYSTEMIC LUPUS ERYTHEMATOSUS
  4. ALPRAZOLAM [Concomitant]
     Dosage: 1 MG, UNK
     Route: 048
  5. IBUPROFEN [Concomitant]
     Dosage: 800 MG, UNK
     Route: 048
  6. ZOLPIDEM TARTRATE [Concomitant]
     Dosage: 5 MG, UNK
     Route: 048
  7. CARISOPRODOL [Concomitant]
     Dosage: 350 MG, UNK
     Route: 048
  8. HYDROXYZINE HCL [Concomitant]
     Dosage: 10 MG, UNK
  9. PREDNISONE [Concomitant]
     Dosage: 5 MG, UNK
     Route: 048
  10. CALCIPOTRIENE [Concomitant]
     Dosage: .005 %, UNK
     Route: 061
  11. METOCLOPRAMIDE [Concomitant]
     Dosage: 5 MG, UNK
     Route: 048
  12. FOLIC ACID [Concomitant]
     Dosage: 1 MG, UNK
     Route: 048
  13. ONDANSETRON HYDROCHLORIDE [Concomitant]
     Dosage: 4 MG, UNK
     Route: 048
  14. AZATHIOPRINE [Concomitant]
     Dosage: 50 MG, UNK
  15. PYRIDOXINE HYDROCHLORIDE [Concomitant]
     Dosage: 50 MG, UNK
     Route: 048
  16. MAGNESIUM [Concomitant]
     Dosage: 30 MG, UNK
     Route: 048
  17. MECLIZINE [Concomitant]
     Dosage: 25 MG, UNK
     Route: 048
  18. HYDROCORTISONE [Concomitant]
     Dosage: 25 MG, UNK
  19. ESCITALOPRAM [Concomitant]
     Dosage: 5 MG, UNK
     Route: 048
  20. ZINC [Concomitant]
     Dosage: 50 MG, UNK
     Route: 047
  21. FISH OIL [Concomitant]
     Dosage: UNK UNK, UNK
     Route: 048
  22. FLAX SEED OIL [Concomitant]
  23. CALCIUM CARBONATE/VITAMIN D [Concomitant]
     Dosage: 600 MG, UNK
     Route: 048
  24. MULTI-VITAMINS [Concomitant]
     Dosage: UNK UNK, UNK
     Route: 048
  25. HERBAL SUPPLEMENT [Concomitant]
     Dosage: 500 MG, UNK
     Route: 048
  26. HYDROCODONE [Concomitant]
     Dosage: UNK UNK, UNK
     Route: 048

REACTIONS (13)
  - ANXIETY [None]
  - DYSURIA [None]
  - GINGIVAL PAIN [None]
  - INFLUENZA LIKE ILLNESS [None]
  - INJECTION SITE ERYTHEMA [None]
  - INJECTION SITE PRURITUS [None]
  - INJECTION SITE REACTION [None]
  - INJECTION SITE SWELLING [None]
  - INSOMNIA [None]
  - MEMORY IMPAIRMENT [None]
  - NAUSEA [None]
  - PAIN [None]
  - PSORIASIS [None]
